FAERS Safety Report 10903422 (Version 1)
Quarter: 2015Q1

REPORT INFORMATION
  Report Type: Spontaneous
  Country: US (occurrence: None)
  Receive Date: 20150304
  Receipt Date: 20150304
  Transmission Date: 20150721
  Serious: Yes (Hospitalization)
  Sender: FDA-Public Use
  Company Number: None

PATIENT
  Sex: Male
  Weight: 71 kg

DRUGS (16)
  1. RIBAVIRIN. [Suspect]
     Active Substance: RIBAVIRIN
     Indication: HEPATITIS
     Route: 048
     Dates: start: 20140926
  2. MYCOPHENOLATE [Concomitant]
     Active Substance: MYCOPHENOLIC ACID
  3. PROGRAF [Concomitant]
     Active Substance: TACROLIMUS\TACROLIMUS ANHYDROUS
  4. TRAZODONE [Concomitant]
     Active Substance: TRAZODONE HYDROCHLORIDE
  5. ALPRAZOLAM. [Concomitant]
     Active Substance: ALPRAZOLAM
  6. CEFTAZIDIME. [Concomitant]
     Active Substance: CEFTAZIDIME
  7. MEGESTROL [Concomitant]
     Active Substance: MEGESTROL
  8. MYFORTIC [Concomitant]
     Active Substance: MYCOPHENOLATE SODIUM
  9. AMLODIPINE BESYLATE. [Concomitant]
     Active Substance: AMLODIPINE BESYLATE
  10. SOVALDI [Suspect]
     Active Substance: SOFOSBUVIR
     Indication: HEPATITIS C
     Route: 048
     Dates: start: 20140926
  11. XIFAXAN [Concomitant]
     Active Substance: RIFAXIMIN
  12. WARAFIN SODIUM [Concomitant]
  13. NEURONTIN [Concomitant]
     Active Substance: GABAPENTIN
  14. CALCIUM ACETATE. [Concomitant]
     Active Substance: CALCIUM ACETATE
  15. LEVETIRACETAM. [Concomitant]
     Active Substance: LEVETIRACETAM
  16. COLISTIN NEBULIZERS [Concomitant]

REACTIONS (7)
  - Encephalopathy [None]
  - Anoxia [None]
  - Ventricular fibrillation [None]
  - Cardiac arrest [None]
  - Fall [None]
  - Pneumonia aspiration [None]
  - Pseudomonas test positive [None]

NARRATIVE: CASE EVENT DATE: 20150202
